FAERS Safety Report 20633020 (Version 5)
Quarter: 2022Q3

REPORT INFORMATION
  Report Type: Report from Study
  Country: CA (occurrence: CA)
  Receive Date: 20220324
  Receipt Date: 20220711
  Transmission Date: 20221027
  Serious: Yes (Other)
  Sender: FDA-Public Use
  Company Number: CA-PFIZER INC-2021575264

PATIENT
  Age: 21 Year
  Sex: Male
  Weight: 72 kg

DRUGS (6)
  1. ABROCITINIB [Suspect]
     Active Substance: ABROCITINIB
     Indication: Dermatitis atopic
     Dosage: 200 MG, 1X/DAY
     Route: 048
     Dates: start: 20210323, end: 20210520
  2. MOXIFLOXACIN [Concomitant]
     Active Substance: MOXIFLOXACIN
     Indication: Ophthalmic herpes simplex
     Dosage: 0.5 %, EVERY 4 HRS EYE DROPS
     Route: 047
     Dates: start: 20210406, end: 20210421
  3. VALACYCLOVIR [Concomitant]
     Active Substance: VALACYCLOVIR HYDROCHLORIDE
     Indication: Ophthalmic herpes simplex
     Dosage: 500 MG, 3X/DAY
     Route: 048
     Dates: start: 20210406, end: 20210421
  4. SYSTANE (HYPROMELLOSE 2910 (4000 MPA.S)) [Concomitant]
     Active Substance: HYPROMELLOSE 2910 (4000 MPA.S)
     Indication: Ophthalmic herpes simplex
     Dosage: 1 DROP, EVERY 4 HRS EYE DROPS
     Route: 047
     Dates: start: 20210406, end: 20210421
  5. ACYCLOVIR [Concomitant]
     Active Substance: ACYCLOVIR
     Indication: Ophthalmic herpes simplex
     Dosage: 400 MG, 2X/DAY
     Route: 048
     Dates: start: 20210505, end: 202108
  6. DEXAMETHASONE [Concomitant]
     Active Substance: DEXAMETHASONE
     Indication: Ophthalmic herpes simplex
     Dosage: 0.1 %, 2X/DAY
     Route: 047
     Dates: start: 20210505, end: 202111

REACTIONS (1)
  - Ulcerative keratitis [Recovering/Resolving]

NARRATIVE: CASE EVENT DATE: 20210503
